FAERS Safety Report 8965557 (Version 1)
Quarter: 2012Q4

REPORT INFORMATION
  Report Type: Spontaneous
  Country: US (occurrence: None)
  Receive Date: 20121212
  Receipt Date: 20121212
  Transmission Date: 20130627
  Serious: Yes (Hospitalization)
  Sender: FDA-Public Use
  Company Number: None

PATIENT
  Age: 94 Year
  Sex: Female
  Weight: 76.2 kg

DRUGS (1)
  1. XARELTO [Suspect]

REACTIONS (4)
  - Dyspnoea [None]
  - Asthenia [None]
  - Haemoglobin decreased [None]
  - Occult blood positive [None]
